FAERS Safety Report 8305379-6 (Version None)
Quarter: 2012Q2

REPORT INFORMATION
  Report Type: 
  Country: None (occurrence: None)
  Receive Date: 20120423
  Receipt Date: 20120405
  Transmission Date: 20120825
  Serious: Yes (Death)
  Sender: FDA-Public Use
  Company Number: GB-AMGEN-GBRCT2012018054

PATIENT
  Age: 73 Year
  Sex: Female
  Weight: 58 kg

DRUGS (1)
  1. ETANERCEPT [Suspect]
     Indication: RHEUMATOID ARTHRITIS
     Dosage: 25 MG, 2 TIMES/WK
     Dates: start: 20100530, end: 20111201

REACTIONS (2)
  - GASTROENTERITIS [None]
  - RENAL FAILURE ACUTE [None]
